FAERS Safety Report 12371942 (Version 1)
Quarter: 2016Q2

REPORT INFORMATION
  Report Type: Spontaneous
  Country: HU (occurrence: HU)
  Receive Date: 20160516
  Receipt Date: 20160516
  Transmission Date: 20160815
  Serious: Yes (Hospitalization, Other)
  Sender: FDA-Public Use
  Company Number: HU-ELI_LILLY_AND_COMPANY-HU201605001060

PATIENT
  Age: 55 Year
  Sex: Male

DRUGS (3)
  1. CISPLATIN. [Suspect]
     Active Substance: CISPLATIN
     Indication: CHEMOTHERAPY
     Dosage: UNK, UNKNOWN
     Route: 065
     Dates: start: 20150204
  2. ALIMTA [Suspect]
     Active Substance: PEMETREXED DISODIUM
     Indication: CHEMOTHERAPY
     Dosage: UNK, UNKNOWN
     Route: 065
     Dates: start: 20150204
  3. XALKORI [Suspect]
     Active Substance: CRIZOTINIB
     Indication: CHEMOTHERAPY
     Dosage: UNK, UNKNOWN
     Route: 065
     Dates: start: 20150422

REACTIONS (8)
  - Partial seizures [Unknown]
  - Malignant neoplasm progression [Unknown]
  - Brain compression [Unknown]
  - Generalised tonic-clonic seizure [Unknown]
  - Malignant neoplasm progression [Unknown]
  - Brain oedema [Unknown]
  - Leukopenia [Unknown]
  - Thrombocytopenia [Unknown]

NARRATIVE: CASE EVENT DATE: 20150415
